FAERS Safety Report 21221760 (Version 2)
Quarter: 2022Q3

REPORT INFORMATION
  Report Type: Spontaneous
  Country: US (occurrence: US)
  Receive Date: 20220817
  Receipt Date: 20220825
  Transmission Date: 20221027
  Serious: No
  Sender: FDA-Public Use
  Company Number: US-LUPIN PHARMACEUTICALS INC.-2022-10273

PATIENT
  Sex: Male
  Weight: 90.71 kg

DRUGS (2)
  1. TESTOSTERONE GEL 1.62% [Suspect]
     Active Substance: TESTOSTERONE
     Indication: Blood testosterone decreased
     Dosage: 1 DOSAGE FORM, QD
     Route: 065
     Dates: start: 20220707, end: 202207
  2. TESTOSTERONE GEL 1.62% [Suspect]
     Active Substance: TESTOSTERONE
     Dosage: 1 DOSAGE FORM, QD
     Route: 065
     Dates: start: 202207, end: 20220720

REACTIONS (2)
  - Gynaecomastia [Unknown]
  - Product dose omission issue [Unknown]
